FAERS Safety Report 13869778 (Version 1)
Quarter: 2017Q3

REPORT INFORMATION
  Report Type: Spontaneous
  Country: US (occurrence: US)
  Receive Date: 20170815
  Receipt Date: 20170815
  Transmission Date: 20171127
  Serious: No
  Sender: FDA-Public Use
  Company Number: GXBR2017US000793

PATIENT
  Sex: Female

DRUGS (1)
  1. VITAMIN A AND D [Suspect]
     Active Substance: LANOLIN\PETROLATUM
     Indication: PRODUCT USED FOR UNKNOWN INDICATION
     Route: 047

REACTIONS (5)
  - Ocular hyperaemia [Not Recovered/Not Resolved]
  - Exposure via eye contact [Not Recovered/Not Resolved]
  - Urticaria [Not Recovered/Not Resolved]
  - Eye pain [Not Recovered/Not Resolved]
  - Blister [Not Recovered/Not Resolved]
